FAERS Safety Report 8451436-3 (Version None)
Quarter: 2012Q2

REPORT INFORMATION
  Report Type: 
  Country: None (occurrence: None)
  Receive Date: 20120620
  Receipt Date: 20120320
  Transmission Date: 20120825
  Serious: No
  Sender: FDA-Public Use
  Company Number: US-VERTEX PHARMACEUTICALS INC.-AE-2012-002962

PATIENT
  Sex: Male
  Weight: 97.61 kg

DRUGS (5)
  1. COPEGUS [Concomitant]
     Indication: HEPATITIS C
     Route: 048
     Dates: start: 20120209
  2. NAPROXEN (ALEVE) [Concomitant]
     Indication: MUSCLE SPASMS
  3. INCIVEK [Suspect]
     Indication: HEPATITIS C
     Route: 048
     Dates: start: 20120209
  4. PEGASYS [Concomitant]
     Indication: HEPATITIS C
     Dates: start: 20120209
  5. BANADRYL [Concomitant]

REACTIONS (2)
  - ANORECTAL DISCOMFORT [None]
  - ANAL PRURITUS [None]
